FAERS Safety Report 5943981-7 (Version None)
Quarter: 2008Q4

REPORT INFORMATION
  Report Type: 
  Country: None (occurrence: None)
  Receive Date: 20081106
  Receipt Date: 20081024
  Transmission Date: 20090506
  Serious: Yes (Other)
  Sender: FDA-Public Use
  Company Number: FR-ELI_LILLY_AND_COMPANY-FR200810006046

PATIENT
  Sex: Female

DRUGS (1)
  1. CYMBALTA [Suspect]
     Dosage: 120 MG, DAILY (1/D)
     Route: 048
     Dates: start: 20080901

REACTIONS (3)
  - LIVER INJURY [None]
  - THYROID DISORDER [None]
  - TRANSAMINASES INCREASED [None]
